FAERS Safety Report 15154592 (Version 2)
Quarter: 2018Q3

REPORT INFORMATION
  Report Type: Report from Study
  Country: None (occurrence: CA)
  Receive Date: 20180717
  Receipt Date: 20180720
  Transmission Date: 20181010
  Serious: Yes (Death)
  Sender: FDA-Public Use
  Company Number: CA-ABBVIE-18S-028-2421105-00

PATIENT
  Age: 81 Year
  Sex: Male
  Weight: 59.93 kg

DRUGS (2)
  1. SYNTHROID [Concomitant]
     Active Substance: LEVOTHYROXINE SODIUM
     Indication: PRODUCT USED FOR UNKNOWN INDICATION
  2. DUODOPA [Suspect]
     Active Substance: CARBIDOPA\LEVODOPA
     Indication: PARKINSON^S DISEASE
     Dosage: MD: 15 ML?CD: 6.9 ML?ED: 1 ML
     Route: 050
     Dates: start: 20180221

REACTIONS (1)
  - Death [Fatal]

NARRATIVE: CASE EVENT DATE: 20180712
